FAERS Safety Report 21147346 (Version 1)
Quarter: 2022Q3

REPORT INFORMATION
  Report Type: Spontaneous
  Country: IE (occurrence: IE)
  Receive Date: 20220729
  Receipt Date: 20220729
  Transmission Date: 20221027
  Serious: Yes (Other)
  Sender: FDA-Public Use
  Company Number: IE-PFIZER INC-202201016334

PATIENT
  Age: 67 Year
  Sex: Female

DRUGS (1)
  1. IBRANCE [Suspect]
     Active Substance: PALBOCICLIB
     Dosage: UNK, CYCLIC (3 WEEKS ON/1 WEEK OFF)

REACTIONS (5)
  - Nausea [Unknown]
  - Nasopharyngitis [Unknown]
  - Neutropenia [Unknown]
  - Second primary malignancy [Unknown]
  - Uterine cancer [Unknown]

NARRATIVE: CASE EVENT DATE: 20220101
